FAERS Safety Report 20320780 (Version 3)
Quarter: 2022Q4

REPORT INFORMATION
  Report Type: Spontaneous
  Country: AR (occurrence: AR)
  Receive Date: 20220111
  Receipt Date: 20221111
  Transmission Date: 20230112
  Serious: Yes (Other)
  Sender: FDA-Public Use
  Company Number: AR-NOVARTISPH-NVSC2022AR002616

PATIENT
  Sex: Female

DRUGS (1)
  1. HYRIMOZ [Suspect]
     Active Substance: ADALIMUMAB-ADAZ
     Indication: Crohn^s disease
     Dosage: 1 DOSAGE FORM, QW (40 MG/0.8 ML)
     Route: 065

REACTIONS (4)
  - Haemorrhage [Unknown]
  - Feeling of despair [Unknown]
  - Syringe issue [Unknown]
  - Device occlusion [Unknown]
